FAERS Safety Report 8036601-1 (Version None)
Quarter: 2012Q1

REPORT INFORMATION
  Report Type: 
  Country: None (occurrence: None)
  Receive Date: 20120111
  Receipt Date: 20111227
  Transmission Date: 20120608
  Serious: Yes (Hospitalization)
  Sender: FDA-Public Use
  Company Number: IT-CELGENEUS-083-20785-11102044

PATIENT
  Sex: Female

DRUGS (9)
  1. PREDNISONE TAB [Suspect]
     Indication: MULTIPLE MYELOMA
     Dosage: 50 MILLIGRAM
     Route: 048
     Dates: start: 20110428, end: 20110501
  2. NATECAL D3 [Concomitant]
     Dosage: 1 UNIT
     Route: 065
  3. ASPIRIN [Concomitant]
     Dosage: 1 UNIT
     Route: 065
  4. ZOMETA [Concomitant]
     Route: 065
  5. OMEPRAZOLE [Concomitant]
     Route: 065
  6. GAVISCON [Concomitant]
     Route: 065
  7. THALIDOMIDE [Suspect]
     Indication: MULTIPLE MYELOMA
     Dosage: 50 MILLIGRAM
     Route: 048
     Dates: start: 20110428, end: 20110516
  8. ALKERAN [Suspect]
     Indication: MULTIPLE MYELOMA
     Dosage: 10 MILLIGRAM
     Route: 048
     Dates: start: 20110428, end: 20110501
  9. ALLOPURINOL [Concomitant]
     Dosage: 100 MILLIGRAM
     Route: 065

REACTIONS (4)
  - PULMONARY HYPERTENSION [None]
  - ATRIAL FIBRILLATION [None]
  - DYSPNOEA EXERTIONAL [None]
  - ASTHENIA [None]
